FAERS Safety Report 8887121 (Version 1)
Quarter: 2012Q4

REPORT INFORMATION
  Report Type: 
  Country: US (occurrence: US)
  Receive Date: 20121105
  Receipt Date: 20121105
  Transmission Date: 20130627
  Serious: Yes (Hospitalization, Other)
  Sender: FDA-Public Use
  Company Number: US-009507513-1210USA014305

PATIENT
  Age: 50 None
  Sex: Female

DRUGS (3)
  1. PEG-INTRON [Suspect]
     Indication: HEPATITIS C
     Dosage: UNK
     Dates: start: 20120314, end: 20120828
  2. REBETOL [Suspect]
     Indication: HEPATITIS C
     Dosage: UNK
     Route: 048
     Dates: start: 20120314, end: 20120828
  3. TELAPREVIR [Suspect]
     Indication: HEPATITIS C
     Dosage: UNK
     Dates: start: 20120314, end: 20120606

REACTIONS (5)
  - Atrial fibrillation [Unknown]
  - Influenza like illness [Recovering/Resolving]
  - Ocular icterus [Unknown]
  - Influenza [Unknown]
  - Nasopharyngitis [Unknown]
